FAERS Safety Report 10074305 (Version 1)
Quarter: 2014Q2

REPORT INFORMATION
  Report Type: Spontaneous
  Country: US (occurrence: US)
  Receive Date: 20140411
  Receipt Date: 20140411
  Transmission Date: 20141212
  Serious: No
  Sender: FDA-Public Use
  Company Number: US-SANOFI-AVENTIS-2013SA047459

PATIENT
  Age: 60 Year
  Sex: Male

DRUGS (1)
  1. ALLEGRA-D, 12 HR [Suspect]
     Indication: SEASONAL ALLERGY
     Route: 048
     Dates: start: 20130505

REACTIONS (4)
  - Dyspepsia [Not Recovered/Not Resolved]
  - Malaise [Not Recovered/Not Resolved]
  - Insomnia [Not Recovered/Not Resolved]
  - Restlessness [Not Recovered/Not Resolved]
